FAERS Safety Report 5656659-4 (Version None)
Quarter: 2008Q1

REPORT INFORMATION
  Report Type: 
  Country: None (occurrence: None)
  Receive Date: 20080219
  Receipt Date: 20071207
  Transmission Date: 20080703
  Serious: No
  Sender: FDA-Public Use
  Company Number: WAES 0712USA02301

PATIENT
  Age: 43 Year
  Sex: Female
  Weight: 116.5744 kg

DRUGS (1)
  1. JANUVIA [Suspect]
     Indication: TYPE 2 DIABETES MELLITUS
     Dosage: 100 MG/DAILY/PO
     Route: 048
     Dates: start: 20070219, end: 20070224

REACTIONS (3)
  - PRURITUS [None]
  - RASH GENERALISED [None]
  - URTICARIA [None]
